FAERS Safety Report 5533750-4 (Version None)
Quarter: 2007Q4

REPORT INFORMATION
  Report Type: 
  Country: None (occurrence: None)
  Receive Date: 20071204
  Receipt Date: 20071127
  Transmission Date: 20080405
  Serious: No
  Sender: FDA-Public Use
  Company Number: US-BOEHRINGER INGELHEIM PHARMACEUTICALS, INC.-2007-BP-25321BP

PATIENT
  Sex: Female

DRUGS (4)
  1. SPIRIVA [Suspect]
     Indication: DYSPNOEA
  2. SPIRIVA [Suspect]
     Indication: PNEUMONIA
  3. OXYGEN [Concomitant]
     Indication: PNEUMONIA
  4. OTHER MEDICATIONS [Concomitant]
     Indication: PNEUMONIA

REACTIONS (2)
  - SWOLLEN TONGUE [None]
  - TONGUE EXFOLIATION [None]
